FAERS Safety Report 8206053-7 (Version None)
Quarter: 2012Q1

REPORT INFORMATION
  Report Type: 
  Country: None (occurrence: None)
  Receive Date: 20120309
  Receipt Date: 20120301
  Transmission Date: 20120608
  Serious: Yes (Hospitalization, Disabling)
  Sender: FDA-Public Use
  Company Number: 2012SP010099

PATIENT
  Age: 28 Year
  Sex: Female
  Weight: 45 kg

DRUGS (4)
  1. DESOGESTREL/ETHUNYL ESTRADIOL [Suspect]
     Indication: CONTRACEPTION
     Dosage: 1 DF;QD;PO
     Route: 048
     Dates: start: 20110608, end: 20110624
  2. DESOGESTREL/ETHUNYL ESTRADIOL [Suspect]
     Indication: DYSMENORRHOEA
     Dosage: 1 DF;QD;PO
     Route: 048
     Dates: start: 20110608, end: 20110624
  3. BUFERIN (MANGNSIUM CARBONATE) [Concomitant]
  4. NORGESTREL AND ETHINYL ESTRADIOL [Concomitant]

REACTIONS (2)
  - BACK PAIN [None]
  - DEEP VEIN THROMBOSIS [None]
